FAERS Safety Report 21357708 (Version 4)
Quarter: 2023Q1

REPORT INFORMATION
  Report Type: Report from Study
  Country: US (occurrence: US)
  Receive Date: 20220921
  Receipt Date: 20230107
  Transmission Date: 20230417
  Serious: Yes (Other)
  Sender: FDA-Public Use
  Company Number: US-NOVARTISTESTPH-NVSC2022US209619

PATIENT
  Sex: Female

DRUGS (2)
  1. ILARIS [Suspect]
     Active Substance: CANAKINUMAB
     Indication: Juvenile idiopathic arthritis
     Dosage: 150 MG, EVERY 4 WEEKS
     Route: 058
     Dates: start: 20220428
  2. ILARIS [Suspect]
     Active Substance: CANAKINUMAB
     Dosage: UNK
     Route: 065
     Dates: start: 20220817

REACTIONS (6)
  - Juvenile idiopathic arthritis [Unknown]
  - Pain [Unknown]
  - Rash [Unknown]
  - Nightmare [Unknown]
  - Frustration tolerance decreased [Unknown]
  - Product availability issue [Unknown]
